FAERS Safety Report 25525438 (Version 4)
Quarter: 2025Q3

REPORT INFORMATION
  Report Type: Spontaneous
  Country: US (occurrence: US)
  Receive Date: 20250707
  Receipt Date: 20250807
  Transmission Date: 20251021
  Serious: Yes (Other)
  Sender: PFIZER
  Company Number: US-PFIZER INC-202500134194

PATIENT
  Age: 53 Year
  Sex: Female
  Weight: 86.18 kg

DRUGS (12)
  1. XELJANZ XR [Suspect]
     Active Substance: TOFACITINIB CITRATE
     Indication: Immunosuppression
     Dosage: 11 MG, 1X/DAY
     Route: 048
     Dates: start: 2023, end: 20250623
  2. XELJANZ XR [Suspect]
     Active Substance: TOFACITINIB CITRATE
     Route: 048
     Dates: start: 202507
  3. DILTIAZEM [Concomitant]
     Active Substance: DILTIAZEM
     Indication: Hypertension
     Dosage: 90 MG, 2X/DAY
  4. DILTIAZEM [Concomitant]
     Active Substance: DILTIAZEM
     Indication: Blood pressure measurement
  5. PANTOPRAZOLE [Concomitant]
     Active Substance: PANTOPRAZOLE
     Indication: Gastrooesophageal reflux disease
     Dosage: 40 MG, 2X/DAY
  6. LEFLUNOMIDE [Concomitant]
     Active Substance: LEFLUNOMIDE
     Indication: Arthralgia
     Dosage: 10 MG, 1X/DAY
  7. PREGABALIN [Concomitant]
     Active Substance: PREGABALIN
     Indication: Neuralgia
     Dosage: 50 MG, 1X/DAY
  8. JARDIANCE [Concomitant]
     Active Substance: EMPAGLIFLOZIN
     Indication: Heart rate
     Dosage: 10 MG, 1X/DAY
  9. TORSEMIDE [Concomitant]
     Active Substance: TORSEMIDE
     Indication: Fluid retention
     Dosage: 20 MG, 2X/DAY
  10. POTASSIUM CHLORIDE [Concomitant]
     Active Substance: POTASSIUM CHLORIDE
     Indication: Blood pressure measurement
     Dosage: 20 MEQ, 1X/DAY
  11. SPIRONOLACTONE [Concomitant]
     Active Substance: SPIRONOLACTONE
     Indication: Blood pressure measurement
     Dosage: 25 MG, 1X/DAY
  12. OLOPATADINE [Concomitant]
     Active Substance: OLOPATADINE
     Indication: Eye inflammation
     Dosage: DOSE: HCL 0.290 SOLUTION

REACTIONS (14)
  - Arrhythmia [Recovered/Resolved]
  - Atrial fibrillation [Recovering/Resolving]
  - Acne [Recovered/Resolved]
  - Arthralgia [Recovered/Resolved]
  - Rash [Recovered/Resolved]
  - Brain fog [Recovered/Resolved]
  - C-reactive protein increased [Recovered/Resolved]
  - Skin disorder [Recovered/Resolved]
  - Eye pruritus [Recovered/Resolved]
  - Skin exfoliation [Recovered/Resolved]
  - Inflammation [Recovered/Resolved]
  - Urticaria [Recovered/Resolved]
  - Contusion [Recovered/Resolved]
  - Off label use [Unknown]

NARRATIVE: CASE EVENT DATE: 20230101
